FAERS Safety Report 4880879-X (Version None)
Quarter: 2005Q4

REPORT INFORMATION
  Report Type: 
  Country: None (occurrence: None)
  Receive Date: 20051223
  Receipt Date: 20051102
  Transmission Date: 20060501
  Serious: No
  Sender: FDA-Public Use
  Company Number: 05P-163-0316168-00

PATIENT
  Age: 63 Year
  Sex: Female

DRUGS (8)
  1. HUMIRA [Suspect]
     Indication: RHEUMATOID ARTHRITIS
     Dosage: 40 MG, 1 IN 2 WK, SUBCUTANEOUS
     Route: 058
     Dates: start: 20050801, end: 20051001
  2. PREDNISONE [Concomitant]
  3. NABUMETONE [Concomitant]
  4. VENLAFAXINE HCL [Concomitant]
  5. ALENDRONATE SODIUM [Concomitant]
  6. CALCIUM GLUCONATE [Concomitant]
  7. FOLIC ACID [Concomitant]
  8. CENTRUM SILVER [Concomitant]

REACTIONS (2)
  - DRUG INEFFECTIVE [None]
  - RHEUMATOID ARTHRITIS [None]
